FAERS Safety Report 17602018 (Version 3)
Quarter: 2020Q2

REPORT INFORMATION
  Report Type: Report from Study
  Country: NL (occurrence: NL)
  Receive Date: 20200330
  Receipt Date: 20200511
  Transmission Date: 20200713
  Serious: Yes (Life-Threatening, Hospitalization)
  Sender: FDA-Public Use
  Company Number: NL-INCYTE CORPORATION-2020IN002842

PATIENT

DRUGS (5)
  1. LEVOTHYROXINE. [Concomitant]
     Active Substance: LEVOTHYROXINE
     Indication: HYPOTHYROIDISM
     Dosage: 88 OT
     Route: 065
     Dates: start: 20170731
  2. JAKAVI [Suspect]
     Active Substance: RUXOLITINIB
     Dosage: 30 MG, QD
     Route: 048
     Dates: start: 20180904
  3. JAKAVI [Suspect]
     Active Substance: RUXOLITINIB
     Dosage: 20 OT
     Route: 065
     Dates: start: 20180529, end: 20180903
  4. JAKAVI [Suspect]
     Active Substance: RUXOLITINIB
     Indication: POLYCYTHAEMIA VERA
     Dosage: 10 OT
     Route: 065
     Dates: start: 20180423, end: 20180528
  5. AMLODIPINE [Concomitant]
     Active Substance: AMLODIPINE BESYLATE
     Indication: HYPERTENSION
     Dosage: 10 OT
     Route: 065
     Dates: start: 20151201

REACTIONS (2)
  - Coronavirus infection [Unknown]
  - Nasopharyngitis [Recovered/Resolved]

NARRATIVE: CASE EVENT DATE: 202001
